FAERS Safety Report 22295983 (Version 4)
Quarter: 2023Q4

REPORT INFORMATION
  Report Type: Spontaneous
  Country: US (occurrence: US)
  Receive Date: 20230508
  Receipt Date: 20231130
  Transmission Date: 20240109
  Serious: No
  Sender: FDA-Public Use
  Company Number: US-PFIZER INC-PV202300079280

PATIENT
  Age: 81 Year
  Sex: Female

DRUGS (1)
  1. IBRANCE [Suspect]
     Active Substance: PALBOCICLIB
     Indication: Breast cancer female
     Dosage: 75 MG, CYCLIC (1 TABLET FOR 21 DAYS FOLLOWED BY 7 DAYS OFF, WITH OR WITHOUT FOOD)
     Route: 048
     Dates: end: 20230501

REACTIONS (3)
  - Tooth abscess [Unknown]
  - Neuralgia [Unknown]
  - Memory impairment [Unknown]
